FAERS Safety Report 23333003 (Version 1)
Quarter: 2023Q4

REPORT INFORMATION
  Report Type: Spontaneous
  Country: SA (occurrence: SA)
  Receive Date: 20231222
  Receipt Date: 20231222
  Transmission Date: 20240110
  Serious: Yes (Hospitalization, Other)
  Sender: FDA-Public Use
  Company Number: SA-SUN PHARMACEUTICAL INDUSTRIES LTD-2023RR-424889

PATIENT
  Age: 7 Decade
  Sex: Male

DRUGS (1)
  1. AMPHOTERICIN B [Suspect]
     Active Substance: AMPHOTERICIN B
     Indication: Phaeohyphomycosis
     Dosage: 5 MILLIGRAM/KILOGRAM, DAILY
     Route: 042

REACTIONS (3)
  - Disease recurrence [Unknown]
  - Acute kidney injury [Recovered/Resolved]
  - Hypokalaemia [Unknown]
